FAERS Safety Report 10426341 (Version 1)
Quarter: 2014Q3

REPORT INFORMATION
  Report Type: Spontaneous
  Country: US (occurrence: None)
  Receive Date: 20140902
  Receipt Date: 20140902
  Transmission Date: 20150326
  Serious: Yes (Death)
  Sender: FDA-Public Use
  Company Number: None

PATIENT
  Age: 73 Year
  Sex: Male
  Weight: .45 kg

DRUGS (2)
  1. SUTENT [Suspect]
     Active Substance: SUNITINIB MALATE
     Indication: HEPATIC CANCER
     Dosage: 3 CAPSULES QD ORAL
     Route: 048
     Dates: start: 20140405, end: 20140710
  2. SUTENT [Suspect]
     Active Substance: SUNITINIB MALATE
     Indication: NEOPLASM
     Dosage: 3 CAPSULES QD ORAL
     Route: 048
     Dates: start: 20140405, end: 20140710

REACTIONS (1)
  - Death [None]

NARRATIVE: CASE EVENT DATE: 20140829
